FAERS Safety Report 9486554 (Version 1)
Quarter: 2013Q3

REPORT INFORMATION
  Report Type: Spontaneous
  Country: FR (occurrence: FR)
  Receive Date: 20130829
  Receipt Date: 20130829
  Transmission Date: 20140515
  Serious: Yes (Life-Threatening)
  Sender: FDA-Public Use
  Company Number: FR-009507513-1308FRA009378

PATIENT
  Age: 89 Year
  Sex: Male

DRUGS (12)
  1. SINEMET 100 MG / 10 MG COMPRIME SECABLE [Suspect]
     Dosage: 1 DF, BID
     Route: 048
  2. LEPONEX [Interacting]
     Indication: HALLUCINATION, VISUAL
     Dosage: 12.5 MG, QD
     Route: 048
     Dates: start: 20130606, end: 20130626
  3. EXELON (RIVASTIGMINE) [Suspect]
     Dosage: 1 DF, QAM
     Route: 062
     Dates: start: 20130531
  4. BISOPROLOL FUMARATE [Suspect]
     Route: 048
  5. TAMSULOSIN HYDROCHLORIDE [Interacting]
     Dosage: 0.4 MG, QAM
     Route: 048
  6. MOVICOL [Concomitant]
     Dosage: 2 DF, QAM
     Route: 048
  7. INEXIUM [Concomitant]
     Dosage: 40 MG, QPM
     Route: 048
  8. KARDEGIC [Concomitant]
     Dosage: 75 MG, QD
     Route: 048
  9. ADANCOR [Concomitant]
     Dosage: 10 MG, QAM
     Route: 048
  10. PRAVASTATIN SODIUM [Concomitant]
     Dosage: 20 MG, QPM
     Route: 048
  11. DAFALGAN [Concomitant]
     Dosage: 500 MG, UNK
     Route: 048
  12. SERESTA [Concomitant]
     Dosage: 5 MG, QD
     Route: 048

REACTIONS (3)
  - Tachycardia [Recovered/Resolved]
  - Ventricular extrasystoles [Recovered/Resolved]
  - Syncope [Recovered/Resolved]
